FAERS Safety Report 7031497-9 (Version None)
Quarter: 2010Q4

REPORT INFORMATION
  Report Type: 
  Country: None (occurrence: None)
  Receive Date: 20101006
  Receipt Date: 20100927
  Transmission Date: 20110411
  Serious: Yes (Other)
  Sender: FDA-Public Use
  Company Number: ES-GILEAD-E2B_00000873

PATIENT
  Age: 43 Year
  Sex: Male

DRUGS (3)
  1. TRUVADA [Suspect]
     Indication: HIV INFECTION
     Route: 048
     Dates: start: 20080101, end: 20090501
  2. TELZIR [Interacting]
     Indication: HIV INFECTION
     Route: 048
     Dates: start: 20080101, end: 20090501
  3. NORVIR [Interacting]
     Indication: HIV INFECTION
     Route: 048
     Dates: start: 20080101, end: 20090501

REACTIONS (1)
  - OSTEONECROSIS [None]
